FAERS Safety Report 6044419-4 (Version None)
Quarter: 2009Q1

REPORT INFORMATION
  Report Type: 
  Country: None (occurrence: None)
  Receive Date: 20090115
  Receipt Date: 20090115
  Transmission Date: 20090719
  Serious: Yes (Death)
  Sender: FDA-Public Use
  Company Number: None

PATIENT
  Sex: Female
  Weight: 59.8 kg

DRUGS (13)
  1. PACLITAXEL [Suspect]
     Indication: CERVIX CARCINOMA
     Dosage: 246 MG Q 21 DAYS IV CHEMO
     Route: 042
     Dates: end: 20081205
  2. CLONIDINE [Concomitant]
  3. VICODIN [Concomitant]
  4. NORVASC [Concomitant]
  5. FEOSOL [Concomitant]
  6. COLACE [Concomitant]
  7. CIMETIDINE [Concomitant]
  8. DIPHENHYDRAMINE HCL [Concomitant]
  9. DEXAMETHASONE [Concomitant]
  10. PALONOSCTRON [Concomitant]
  11. RED BLOOD CELLS [Concomitant]
  12. FUROSEMIDE [Concomitant]
  13. IRON SUCROSE [Concomitant]

REACTIONS (7)
  - CARDIO-RESPIRATORY ARREST [None]
  - CEREBROVASCULAR ACCIDENT [None]
  - CONVULSION [None]
  - FEELING ABNORMAL [None]
  - INFUSION RELATED REACTION [None]
  - LOSS OF CONSCIOUSNESS [None]
  - MYOCARDIAL INFARCTION [None]
